FAERS Safety Report 4427469-0 (Version None)
Quarter: 2004Q3

REPORT INFORMATION
  Report Type: 
  Country: None (occurrence: None)
  Receive Date: 20040817
  Receipt Date: 20040810
  Transmission Date: 20050211
  Serious: Yes (Death, Other)
  Sender: FDA-Public Use
  Company Number: US-JNJFOC-20040803902

PATIENT
  Sex: Female

DRUGS (2)
  1. RISPERDAL [Suspect]
     Indication: DEMENTIA
     Route: 049
  2. SEROQUEL [Concomitant]

REACTIONS (1)
  - SUBDURAL HAEMATOMA [None]
